FAERS Safety Report 4583412-5 (Version None)
Quarter: 2005Q1

REPORT INFORMATION
  Report Type: 
  Country: None (occurrence: None)
  Receive Date: 20050211
  Receipt Date: 20050131
  Transmission Date: 20050727
  Serious: Yes (Hospitalization)
  Sender: FDA-Public Use
  Company Number: 2005CG00231

PATIENT
  Age: 69 Year
  Sex: Female

DRUGS (16)
  1. TENORMIN [Suspect]
     Dates: start: 19950101, end: 20050107
  2. DEPAKENE [Suspect]
     Indication: EPILEPSY
     Dates: start: 20041225, end: 20041226
  3. DEPAKENE [Suspect]
     Indication: EPILEPSY
     Dosage: 1 G DAILY PO
     Route: 048
     Dates: start: 20041226, end: 20050107
  4. RIVOTRIL [Suspect]
     Dates: end: 20050107
  5. KAYEXALATE [Suspect]
     Dates: end: 20050107
  6. VENTOLIN [Suspect]
     Dates: end: 20050107
  7. LASILIX [Concomitant]
  8. LOPRIL  /FRA/ [Concomitant]
  9. DILTIAZEM HCL [Concomitant]
  10. PRIMPERAN TAB [Concomitant]
  11. PANFUREX [Concomitant]
  12. SMECTA ^IPSEN^ [Concomitant]
  13. ASPEGIC /FRA/ [Concomitant]
  14. DOBUTREX [Concomitant]
  15. CALCIPARINE [Concomitant]
  16. HEPARINE SODIQUE [Concomitant]

REACTIONS (8)
  - ALANINE AMINOTRANSFERASE INCREASED [None]
  - ASPARTATE AMINOTRANSFERASE INCREASED [None]
  - BLOOD ALKALINE PHOSPHATASE INCREASED [None]
  - BLOOD BILIRUBIN INCREASED [None]
  - CARDIOGENIC SHOCK [None]
  - EPILEPSY [None]
  - GAMMA-GLUTAMYLTRANSFERASE INCREASED [None]
  - PANCREATITIS ACUTE [None]
